FAERS Safety Report 5840279-2 (Version None)
Quarter: 2008Q3

REPORT INFORMATION
  Report Type: 
  Country: None (occurrence: None)
  Receive Date: 20080811
  Receipt Date: 20080801
  Transmission Date: 20090109
  Serious: Yes (Other)
  Sender: FDA-Public Use
  Company Number: US-AVENTIS-200811777US

PATIENT
  Sex: Female
  Weight: 164 kg

DRUGS (23)
  1. KETEK [Suspect]
     Indication: ASTHMA
     Dosage: DOSE: UNK
     Dates: start: 20041008
  2. KETEK [Suspect]
     Dosage: DOSE: UNK
     Dates: start: 20041215, end: 20041201
  3. KETEK [Suspect]
     Dosage: DOSE: UNK
     Dates: start: 20050128, end: 20050101
  4. KETEK [Suspect]
     Dates: start: 20050306, end: 20050316
  5. KETEK [Suspect]
     Dosage: DOSE: UNK
     Dates: start: 20050325, end: 20050101
  6. KETEK [Suspect]
     Dates: start: 20050706, end: 20050716
  7. KETEK [Suspect]
     Indication: COUGH
     Dosage: DOSE: UNK
     Dates: start: 20041008
  8. KETEK [Suspect]
     Dosage: DOSE: UNK
     Dates: start: 20041215, end: 20041201
  9. KETEK [Suspect]
     Dosage: DOSE: UNK
     Dates: start: 20050128, end: 20050101
  10. KETEK [Suspect]
     Dates: start: 20050306, end: 20050316
  11. KETEK [Suspect]
     Dosage: DOSE: UNK
     Dates: start: 20050325, end: 20050101
  12. KETEK [Suspect]
     Dates: start: 20050706, end: 20050716
  13. TOPAMAX [Concomitant]
     Dosage: DOSE: UNK
  14. DIOVANE [Concomitant]
     Dosage: DOSE: UNK
  15. SYNTHROID [Concomitant]
     Dosage: DOSE: UNK
  16. ZYRTEC [Concomitant]
     Dosage: DOSE: UNK
  17. ACIPHEX [Concomitant]
     Dosage: DOSE: UNK
  18. NORVASC [Concomitant]
     Dosage: DOSE: UNK
  19. ELAVIL [Concomitant]
     Dosage: DOSE: UNK
  20. INSULIN [Concomitant]
     Dosage: DOSE: UNK
  21. PULMICORT-100 [Concomitant]
  22. FORADIL [Concomitant]
     Dosage: DOSE: UNK
  23. ALBUTEROL [Concomitant]

REACTIONS (18)
  - ANAEMIA [None]
  - BACTERAEMIA [None]
  - CARDIAC FAILURE CONGESTIVE [None]
  - CHOLECYSTITIS CHRONIC [None]
  - EROSIVE OESOPHAGITIS [None]
  - GALLBLADDER CHOLESTEROLOSIS [None]
  - GASTRITIS EROSIVE [None]
  - HAEMANGIOMA OF LIVER [None]
  - HAEMORRHOIDS [None]
  - HEPATIC NEOPLASM [None]
  - HEPATIC STEATOSIS [None]
  - IMPAIRED HEALING [None]
  - LOCALISED OEDEMA [None]
  - LYMPHADENOPATHY [None]
  - POST PROCEDURAL HAEMORRHAGE [None]
  - POST PROCEDURAL SEPSIS [None]
  - RENAL FAILURE ACUTE [None]
  - UROSEPSIS [None]
